FAERS Safety Report 24135361 (Version 6)
Quarter: 2025Q2

REPORT INFORMATION
  Report Type: Report from Study
  Country: CA (occurrence: CA)
  Receive Date: 20240725
  Receipt Date: 20250511
  Transmission Date: 20250717
  Serious: Yes (Hospitalization)
  Sender: ABBVIE
  Company Number: CA-ABBVIE-5850697

PATIENT
  Age: 78 Year
  Sex: Female

DRUGS (22)
  1. VENETOCLAX [Suspect]
     Active Substance: VENETOCLAX
     Indication: Acute myeloid leukaemia
     Dosage: END OF CYCLE
     Route: 048
     Dates: start: 20240619, end: 20240625
  2. VENETOCLAX [Suspect]
     Active Substance: VENETOCLAX
     Indication: Acute myeloid leukaemia
     Dosage: REASON FOR ENDING THE TREATMENT DOSE: ADVERSE EVENT, FEBRILE NEUTROPENIA, IN HOSPITAL
     Route: 048
     Dates: start: 2024, end: 20240705
  3. VENETOCLAX [Suspect]
     Active Substance: VENETOCLAX
     Indication: Acute myeloid leukaemia
     Dosage: END OF CYCLE
     Route: 048
     Dates: start: 20240713, end: 20240721
  4. VENETOCLAX [Suspect]
     Active Substance: VENETOCLAX
     Indication: Acute myeloid leukaemia
     Dosage: END OF CYCLE, REASON FOR REDUCING THE DAILY DOSE OF VENETOCLAX: VENETOCLAX DOSE REMAINS 400MG BUT...
     Route: 048
     Dates: start: 20241202, end: 20241209
  5. VENETOCLAX [Suspect]
     Active Substance: VENETOCLAX
     Indication: Acute myeloid leukaemia
     Dosage: MODIFICATION TO THE DAILY DOSE: DOSE REDUCTION REASON FOR ENDING THE TREATMENT DOSE: END OF CYCLE...
     Route: 048
     Dates: start: 20240806, end: 20240820
  6. VENETOCLAX [Suspect]
     Active Substance: VENETOCLAX
     Indication: Acute myeloid leukaemia
     Dosage: MODIFICATION TO THE DAILY DOSE: DOSE REDUCTION REASON FOR ENDING THE TREATMENT DOSE: END OF CYCLE...
     Route: 048
     Dates: start: 20240930, end: 20241010
  7. VENETOCLAX [Suspect]
     Active Substance: VENETOCLAX
     Indication: Acute myeloid leukaemia
     Dosage: END OF CYCLE
     Route: 048
     Dates: start: 20241028, end: 20241129
  8. VENETOCLAX [Suspect]
     Active Substance: VENETOCLAX
     Indication: Acute myeloid leukaemia
     Dosage: END OF CYCLE
     Route: 048
     Dates: start: 20250106, end: 20250113
  9. VENETOCLAX [Suspect]
     Active Substance: VENETOCLAX
     Indication: Acute myeloid leukaemia
     Dosage: OUT-PATIENT, DOSE INCREASED
     Route: 048
     Dates: start: 20240617, end: 20240618
  10. VENETOCLAX [Suspect]
     Active Substance: VENETOCLAX
     Indication: Acute myeloid leukaemia
     Dosage: OUT-PATIENT, DOSE INCREASED
     Route: 048
     Dates: start: 20240618, end: 20240619
  11. AZACITIDINE [Suspect]
     Active Substance: AZACITIDINE
     Indication: Product used for unknown indication
     Dosage: MEDICATION NOT GIVEN ON THE WEEKEND
     Route: 065
     Dates: start: 20240617, end: 20240621
  12. AZACITIDINE [Suspect]
     Active Substance: AZACITIDINE
     Indication: Product used for unknown indication
     Dosage: NOT ADMINISTERED OVER THE WEEKEND
     Route: 065
     Dates: start: 20241028, end: 20241101
  13. AZACITIDINE [Suspect]
     Active Substance: AZACITIDINE
     Indication: Product used for unknown indication
     Dosage: END OF CYCLE
     Route: 065
     Dates: start: 20241104, end: 20241105
  14. AZACITIDINE [Suspect]
     Active Substance: AZACITIDINE
     Indication: Product used for unknown indication
     Dosage: MEDICATION GIVEN HERE MONDAY TO FRIDAY ONLY. NOT GIVEN OVER THE WEEKENDS
     Route: 065
     Dates: start: 20241202, end: 20241205
  15. AZACITIDINE [Suspect]
     Active Substance: AZACITIDINE
     Indication: Product used for unknown indication
     Dosage: END OF CYCLE
     Route: 065
     Dates: start: 20241210, end: 20241211
  16. AZACITIDINE [Suspect]
     Active Substance: AZACITIDINE
     Indication: Product used for unknown indication
     Dosage: MEDICATION WAS NOT GIVEN OVER THE WEEKEND
     Route: 065
     Dates: start: 20240806, end: 20240809
  17. AZACITIDINE [Suspect]
     Active Substance: AZACITIDINE
     Indication: Product used for unknown indication
     Dosage: END OF CYCLE
     Route: 065
     Dates: start: 20240812, end: 20240814
  18. AZACITIDINE [Suspect]
     Active Substance: AZACITIDINE
     Indication: Product used for unknown indication
     Dosage: MEDICATION NOT GIVEN OVER THE WEEK ENDS. GIVEN MONDAY TO FRIDAY ONLY-START BACK ON
     Route: 065
     Dates: start: 20240930, end: 20241004
  19. AZACITIDINE [Suspect]
     Active Substance: AZACITIDINE
     Indication: Product used for unknown indication
     Dosage: END OF CYCLE
     Route: 065
     Dates: start: 20241007, end: 20241008
  20. AZACITIDINE [Suspect]
     Active Substance: AZACITIDINE
     Indication: Product used for unknown indication
     Route: 065
     Dates: start: 20250106, end: 20250110
  21. AZACITIDINE [Suspect]
     Active Substance: AZACITIDINE
     Indication: Product used for unknown indication
     Dosage: END OF CYCLE
     Route: 065
     Dates: start: 20250113, end: 20250114
  22. AZACITIDINE [Suspect]
     Active Substance: AZACITIDINE
     Indication: Product used for unknown indication
     Dosage: END OF CYCLE
     Route: 065
     Dates: start: 20240724, end: 20240725

REACTIONS (1)
  - Acute kidney injury [Recovered/Resolved]

NARRATIVE: CASE EVENT DATE: 20240719
